FAERS Safety Report 19093541 (Version 1)
Quarter: 2021Q2

REPORT INFORMATION
  Report Type: Spontaneous
  Country: FR (occurrence: FR)
  Receive Date: 20210405
  Receipt Date: 20210405
  Transmission Date: 20210717
  Serious: Yes (Death, Other)
  Sender: FDA-Public Use
  Company Number: FR-TAKEDA-2021TUS020672

PATIENT
  Age: 36 Year
  Sex: Female

DRUGS (2)
  1. BRIGATINIB [Suspect]
     Active Substance: BRIGATINIB
     Indication: PRODUCT USED FOR UNKNOWN INDICATION
     Dosage: 90 MILLIGRAM, QD
     Route: 065
     Dates: start: 20210114
  2. BRIGATINIB [Suspect]
     Active Substance: BRIGATINIB
     Dosage: 180 MILLIGRAM, QD
     Route: 065

REACTIONS (5)
  - Shock [Fatal]
  - General physical health deterioration [Fatal]
  - Cough [Fatal]
  - Haemoptysis [Fatal]
  - Dyspnoea [Fatal]

NARRATIVE: CASE EVENT DATE: 20210215
